FAERS Safety Report 5068194-5 (Version None)
Quarter: 2006Q3

REPORT INFORMATION
  Report Type: 
  Country: None (occurrence: None)
  Receive Date: 20060802
  Receipt Date: 20050401
  Transmission Date: 20061208
  Serious: No
  Sender: FDA-Public Use
  Company Number: US-BRISTOL-MYERS SQUIBB COMPANY-12918710

PATIENT
  Age: 63 Year
  Sex: Female
  Weight: 104 kg

DRUGS (4)
  1. COUMADIN [Suspect]
     Indication: ATRIAL FIBRILLATION
  2. TOPROL-XL [Concomitant]
  3. DIGOXIN [Concomitant]
  4. VALIUM [Concomitant]

REACTIONS (3)
  - ORAL CANDIDIASIS [None]
  - SKIN ATROPHY [None]
  - VAGINAL INFECTION [None]
